FAERS Safety Report 22131967 (Version 2)
Quarter: 2023Q2

REPORT INFORMATION
  Report Type: Spontaneous
  Country: IT (occurrence: IT)
  Receive Date: 20230323
  Receipt Date: 20230403
  Transmission Date: 20230722
  Serious: Yes (Other)
  Sender: FDA-Public Use
  Company Number: IT-TEVA-2023-IT-2868414

PATIENT
  Age: 62 Year
  Sex: Male

DRUGS (2)
  1. CISPLATIN [Suspect]
     Active Substance: CISPLATIN
     Indication: Squamous cell carcinoma of the oral cavity
     Dosage: 50MG WEEKLY
     Route: 065
     Dates: start: 20171009, end: 20171128
  2. PEMBROLIZUMAB [Suspect]
     Active Substance: PEMBROLIZUMAB
     Indication: Squamous cell carcinoma of lung
     Dosage: 200MG EVERY 3 WEEKS
     Route: 065
     Dates: start: 20211013

REACTIONS (2)
  - Pulmonary nocardiosis [Unknown]
  - Immune reconstitution inflammatory syndrome [Unknown]
